FAERS Safety Report 16528599 (Version 3)
Quarter: 2022Q1

REPORT INFORMATION
  Report Type: Spontaneous
  Country: ES (occurrence: ES)
  Receive Date: 20190703
  Receipt Date: 20220225
  Transmission Date: 20220423
  Serious: Yes (Life-Threatening, Hospitalization, Other)
  Sender: FDA-Public Use
  Company Number: PHHY2019ES150010

PATIENT
  Age: 45 Year
  Sex: Male

DRUGS (8)
  1. EZETIMIBE [Suspect]
     Active Substance: EZETIMIBE
     Indication: Lipids abnormal
     Dosage: UNK
     Route: 065
  2. ATORVASTATIN [Suspect]
     Active Substance: ATORVASTATIN
     Indication: Lipids abnormal
     Dosage: HIGH DOSE
     Route: 065
  3. EVEROLIMUS [Suspect]
     Active Substance: EVEROLIMUS
     Indication: Immunosuppressant drug therapy
     Dosage: UNK
     Route: 065
     Dates: start: 201704, end: 201802
  4. MYCOPHENOLATE MOFETIL [Suspect]
     Active Substance: MYCOPHENOLATE MOFETIL
     Indication: Immunosuppressant drug therapy
     Dosage: UNK
     Route: 065
     Dates: end: 201704
  5. TACROLIMUS [Suspect]
     Active Substance: TACROLIMUS
     Indication: Immunosuppressant drug therapy
     Dosage: UNK
     Route: 065
  6. ALIROCUMAB [Suspect]
     Active Substance: ALIROCUMAB
     Indication: Hepatic function abnormal
     Dosage: 75 MG, Q2MO
     Route: 065
     Dates: start: 201709
  7. PREDNISONE [Suspect]
     Active Substance: PREDNISONE
     Indication: Immunosuppressant drug therapy
     Dosage: UNK
     Route: 065
  8. PITAVASTATIN [Suspect]
     Active Substance: PITAVASTATIN
     Indication: Lipids abnormal
     Dosage: HIGH DOSE
     Route: 065

REACTIONS (13)
  - Liver function test abnormal [Recovered/Resolved]
  - Pulmonary sepsis [Recovered/Resolved]
  - Pneumonia [Recovered/Resolved]
  - Hypercholesterolaemia [Recovering/Resolving]
  - Pruritus [Unknown]
  - Odynophagia [Recovered/Resolved]
  - Anuria [Recovered/Resolved]
  - Condition aggravated [Recovered/Resolved]
  - Dyslipidaemia [Recovered/Resolved]
  - Skin lesion [Recovered/Resolved]
  - Hypotension [Recovered/Resolved]
  - Metabolic acidosis [Recovered/Resolved]
  - Hepatic function abnormal [Unknown]

NARRATIVE: CASE EVENT DATE: 20170901
